FAERS Safety Report 7492325-0 (Version None)
Quarter: 2011Q2

REPORT INFORMATION
  Report Type: 
  Country: None (occurrence: None)
  Receive Date: 20110519
  Receipt Date: 20101230
  Transmission Date: 20111010
  Serious: Yes (Hospitalization)
  Sender: FDA-Public Use
  Company Number: US-BAYER-201030112NA

PATIENT
  Age: 46 Year
  Sex: Female
  Weight: 64.399 kg

DRUGS (3)
  1. LOVASTATIN [Concomitant]
     Indication: HYPERCHOLESTEROLAEMIA
  2. YAZ [Suspect]
     Indication: DYSFUNCTIONAL UTERINE BLEEDING
     Dosage: UNK UNK, UNK
     Route: 048
     Dates: start: 20070520, end: 20070616
  3. LOVASTATIN [Concomitant]
     Indication: BLOOD CHOLESTEROL INCREASED
     Dosage: UNK
     Dates: start: 20070501

REACTIONS (3)
  - THROMBOSIS [None]
  - PELVIC VENOUS THROMBOSIS [None]
  - PULMONARY EMBOLISM [None]
